FAERS Safety Report 7610841-5 (Version None)
Quarter: 2011Q3

REPORT INFORMATION
  Report Type: 
  Country: None (occurrence: None)
  Receive Date: 20110715
  Receipt Date: 20110701
  Transmission Date: 20111222
  Serious: Yes (Death)
  Sender: FDA-Public Use
  Company Number: US-ELI_LILLY_AND_COMPANY-US201012006378

PATIENT
  Sex: Female

DRUGS (21)
  1. XANAX [Concomitant]
     Dosage: 0.5 MG, 4/D
  2. DUONEB [Concomitant]
     Dosage: 3 ML, OTHER
  3. BENICAR HCT [Concomitant]
     Dosage: UNK, DAILY (1/D)
  4. ALBUTEROL SULFATE AUTOHALER [Concomitant]
  5. NORVASC [Concomitant]
     Dosage: 10 MG, DAILY (1/D)
  6. CALCIUM CARBONATE [Concomitant]
     Dosage: 1600 MG, DAILY (1/D)
  7. VITAMIN D [Concomitant]
     Dosage: 2400 UNK, DAILY (1/D)
  8. LORAZEPAM [Concomitant]
  9. PREDNISONE [Concomitant]
  10. ALLEGRA [Concomitant]
     Dosage: 180 UNK, DAILY (1/D)
  11. LEXAPRO [Concomitant]
     Dosage: 20 MG, DAILY (1/D)
  12. ASPIRIN [Concomitant]
     Dosage: 81 MG, DAILY (1/D)
  13. PULMICORT [Concomitant]
     Dosage: UNK, 2/D
  14. OXYCODONE HCL [Concomitant]
  15. RANEXA [Concomitant]
     Dosage: 500 MG, 2/D
  16. VICODIN [Concomitant]
     Indication: PAIN
     Dosage: UNK, AS NEEDED
  17. MUCOMYST [Concomitant]
     Dosage: 3 ML, 4/D
  18. POTASSIUM [Concomitant]
     Dosage: 20 MEQ, DAILY (1/D)
  19. CRESTOR [Concomitant]
     Dosage: 5 MG, DAILY (1/D)
  20. FORTEO [Suspect]
     Indication: OSTEOPOROSIS
     Dosage: 20 UG, DAILY (1/D)
     Dates: start: 20101127
  21. SINGULAIR [Concomitant]
     Dosage: 10 MG, DAILY (1/D)

REACTIONS (12)
  - DEATH [None]
  - FALL [None]
  - UPPER LIMB FRACTURE [None]
  - NERVOUS SYSTEM DISORDER [None]
  - GAIT DISTURBANCE [None]
  - RIB FRACTURE [None]
  - JOINT SWELLING [None]
  - CONTUSION [None]
  - ABDOMINAL DISCOMFORT [None]
  - VISUAL IMPAIRMENT [None]
  - EYE DISORDER [None]
  - HEADACHE [None]
